FAERS Safety Report 9468676 (Version 1)
Quarter: 2013Q3

REPORT INFORMATION
  Report Type: Report from Study
  Country: TR (occurrence: TR)
  Receive Date: 20130821
  Receipt Date: 20130821
  Transmission Date: 20140515
  Serious: Yes (Hospitalization)
  Sender: FDA-Public Use
  Company Number: TR-BAXTER-2013BAX032811

PATIENT
  Age: 2 Year
  Sex: Male
  Weight: 11 kg

DRUGS (1)
  1. FEIBA 500 IU [Suspect]
     Indication: FACTOR VIII DEFICIENCY
     Dosage: 500 UNITS
     Route: 065
     Dates: start: 201211

REACTIONS (3)
  - Swelling face [Recovering/Resolving]
  - Ear swelling [Recovering/Resolving]
  - Fall [Recovering/Resolving]
